FAERS Safety Report 5595605-9 (Version None)
Quarter: 2008Q1

REPORT INFORMATION
  Report Type: 
  Country: None (occurrence: None)
  Receive Date: 20080116
  Receipt Date: 20080116
  Transmission Date: 20080703
  Serious: Yes (Hospitalization)
  Sender: FDA-Public Use
  Company Number: None

PATIENT
  Age: 44 Year
  Sex: Male
  Weight: 149.2 kg

DRUGS (1)
  1. MAGNEVIST [Suspect]
     Indication: NUCLEAR MAGNETIC RESONANCE IMAGING
     Dosage: APPROPRIATE X 1 IV
     Route: 042
     Dates: start: 20071219, end: 20071219

REACTIONS (4)
  - ASPHYXIA [None]
  - CARDIO-RESPIRATORY ARREST [None]
  - FALL [None]
  - NAUSEA [None]
